FAERS Safety Report 7595126-8 (Version None)
Quarter: 2011Q3

REPORT INFORMATION
  Report Type: 
  Country: None (occurrence: None)
  Receive Date: 20110707
  Receipt Date: 20081017
  Transmission Date: 20111222
  Serious: Yes (Death, Hospitalization, Other)
  Sender: FDA-Public Use
  Company Number: US-BAYER-200836265NA

PATIENT
  Age: 60 Year
  Sex: Male
  Weight: 87.5 kg

DRUGS (39)
  1. PACERONE [Concomitant]
     Dosage: 200 MG, BID
     Dates: start: 20000720
  2. ELAVIL [Concomitant]
     Dosage: 10 MG, UNK
     Route: 048
     Dates: start: 20020905
  3. NIMBEX [Concomitant]
     Dosage: 6 MG, UNK
     Route: 042
     Dates: start: 20041024, end: 20041024
  4. LASIX [Concomitant]
     Dosage: 10 MG, UNK
     Route: 042
     Dates: start: 20041024, end: 20041024
  5. ACETYLSALICYLIC ACID SRT [Concomitant]
     Dosage: 81 MG, QD, LONG TERM
     Route: 048
  6. ETOMIDATE [Concomitant]
     Dosage: 10 MG, UNK
     Route: 042
     Dates: start: 20041024, end: 20041024
  7. ROCURONIUM BROMIDE [Concomitant]
     Dosage: 50 MG, UNK
     Route: 042
     Dates: start: 20041024, end: 20041024
  8. ANCEF [Concomitant]
     Dosage: 1 G, UNK, PRIME
     Route: 042
     Dates: start: 20041024, end: 20041024
  9. ALBUMIN (HUMAN) [Concomitant]
     Dosage: 250 ML, UNK
     Route: 042
     Dates: start: 20041024, end: 20041024
  10. ZAROXOLYN [Concomitant]
     Dosage: 5 MG, QD
     Route: 048
     Dates: start: 20040104
  11. LIPITOR [Concomitant]
     Dosage: 40 MG, QD
     Route: 048
  12. VICODIN [Concomitant]
     Dosage: 500 MG, QD
     Route: 048
  13. FENTANYL [Concomitant]
     Dosage: U120/12/250 MICROGRAMS X5
     Route: 042
     Dates: start: 20041024, end: 20041025
  14. NIMBEX [Concomitant]
     Dosage: 6 MG, UNK
     Route: 042
     Dates: start: 20041024, end: 20041024
  15. HEPARIN [Concomitant]
     Dosage: UNK
     Route: 042
     Dates: start: 20041024
  16. PROTAMINE SULFATE [Concomitant]
     Dosage: UNK
     Route: 042
     Dates: start: 20041024, end: 20041024
  17. TRASYLOL [Suspect]
     Indication: CARDIAC PACEMAKER REMOVAL
     Dosage: 200 ML, PRIME
     Route: 042
     Dates: start: 20041024, end: 20041024
  18. RED BLOOD CELLS [Concomitant]
     Dosage: 4 U, UNK
     Route: 042
     Dates: start: 20041024
  19. PLAVIX [Concomitant]
     Dosage: 75 MG, UNK
     Dates: start: 20040122
  20. ZOLOFT [Concomitant]
     Dosage: 50 MG, QD
     Route: 048
  21. PHENERGAN HCL [Concomitant]
     Dosage: 25MG, QD, PRN
     Route: 048
     Dates: start: 20031024
  22. POTASSIUM CHLORIDE [Concomitant]
     Dosage: 6 MILLIEQUIVALENTS TIMES 3
     Route: 042
     Dates: start: 20041024, end: 20041024
  23. AMBIEN [Concomitant]
     Dosage: 20 MG, QD
     Route: 048
     Dates: start: 20000223
  24. ANCEF [Concomitant]
     Dosage: 1 G, TID
     Route: 042
     Dates: start: 20041024, end: 20041025
  25. SODIUM BICARBONATE [Concomitant]
     Dosage: 50 MILLIEQUIVALENTS, PRIME
     Dates: start: 20041024, end: 20041024
  26. KLOR-CON [Concomitant]
     Dosage: 8 MILLIEQUIVALENTS, 6 TABLETS, LONG TERM
     Route: 048
  27. ARICEPT [Concomitant]
     Dosage: 10 MG, QD
     Dates: start: 20020114
  28. COREG [Concomitant]
     Dosage: 25 MG, BID
     Route: 048
     Dates: start: 20030604
  29. TRASYLOL [Suspect]
     Indication: HEART TRANSPLANT
     Dosage: 1 ML, ONCE, TEST DOSE
     Route: 042
     Dates: start: 20041024, end: 20041024
  30. TRASYLOL [Suspect]
     Dosage: 200 ML, LOADING DOSE
     Route: 042
     Dates: start: 20041024, end: 20041024
  31. IMMUNE GLOBULIN NOS [Concomitant]
     Dosage: UNK
     Route: 042
     Dates: start: 20041024
  32. LASIX [Concomitant]
     Dosage: 80 MG, BID
     Route: 048
     Dates: start: 19830101
  33. VASOTEC [Concomitant]
     Dosage: 5 MG, QD, EVERY EVENING
     Dates: start: 20040924
  34. PROSTIGMIN BROMIDE [Concomitant]
     Dosage: 10 MG, TID
     Route: 042
     Dates: start: 20041024, end: 20041024
  35. ISOFLURANE [Concomitant]
     Dosage: 0.4 % / 0.2%
     Dates: start: 20041024, end: 20041025
  36. IMDUR [Concomitant]
     Dosage: 30 MG, QD
     Dates: start: 20031018
  37. IMURAN [Concomitant]
     Dosage: 300 MG, UNK
     Route: 042
     Dates: start: 20041024, end: 20041024
  38. VERSED [Concomitant]
     Dosage: UNK
     Route: 042
     Dates: start: 20041024, end: 20041025
  39. MANNITOL [Concomitant]
     Dosage: 12.5 G, PRIME
     Route: 042
     Dates: start: 20041024, end: 20041024

REACTIONS (13)
  - MULTI-ORGAN FAILURE [None]
  - INJURY [None]
  - RENAL IMPAIRMENT [None]
  - RENAL INJURY [None]
  - STRESS [None]
  - UNEVALUABLE EVENT [None]
  - DEATH [None]
  - ANXIETY [None]
  - RENAL FAILURE [None]
  - EMOTIONAL DISTRESS [None]
  - FEAR [None]
  - PAIN [None]
  - ANHEDONIA [None]
